FAERS Safety Report 9732574 (Version 1)
Quarter: 2013Q4

REPORT INFORMATION
  Report Type: Spontaneous
  Country: US (occurrence: None)
  Receive Date: 20131203
  Receipt Date: 20131203
  Transmission Date: 20140711
  Serious: Yes (Death)
  Sender: FDA-Public Use
  Company Number: US-ALKEM-000349

PATIENT
  Age: 40 Year
  Sex: Female

DRUGS (10)
  1. GABAPENTIN [Suspect]
     Dosage: ORAL
     Route: 048
  2. BUPROPION [Suspect]
     Dosage: ORAL
     Route: 048
  3. CLONAZEPAM [Suspect]
     Route: 048
  4. QUETIAPINE [Suspect]
     Route: 048
  5. CLOZAPINE [Suspect]
     Route: 048
  6. AMPHETAMINE SALTS [Suspect]
     Route: 048
  7. OMEPRAZOLE(OMEPRAZOLE) [Suspect]
     Route: 048
  8. DESVENLAFAXINE [Suspect]
     Route: 048
  9. CLONIDINE [Suspect]
  10. CYCLOBENZAPRINE [Suspect]
     Route: 048

REACTIONS (2)
  - Completed suicide [None]
  - Exposure via ingestion [None]
